FAERS Safety Report 15768424 (Version 1)
Quarter: 2018Q4

REPORT INFORMATION
  Report Type: Report from Study
  Country: None (occurrence: US)
  Receive Date: 20181227
  Receipt Date: 20181227
  Transmission Date: 20190205
  Serious: Yes (Other)
  Sender: FDA-Public Use
  Company Number: US-ABBVIE-18K-163-2583233-00

PATIENT
  Sex: Female

DRUGS (1)
  1. HUMIRA [Suspect]
     Active Substance: ADALIMUMAB
     Indication: HIDRADENITIS
     Route: 058

REACTIONS (4)
  - Multiple sclerosis [Not Recovered/Not Resolved]
  - Renal colic [Recovering/Resolving]
  - Diaphragm muscle weakness [Unknown]
  - Dyspnoea [Unknown]
